FAERS Safety Report 9993549 (Version 2)
Quarter: 2014Q2

REPORT INFORMATION
  Report Type: Report from Study
  Country: JP (occurrence: JP)
  Receive Date: 20140310
  Receipt Date: 20140516
  Transmission Date: 20141212
  Serious: Yes (Other)
  Sender: FDA-Public Use
  Company Number: JP-VERTEX PHARMACEUTICALS INC-2014-001140

PATIENT
  Age: 46 Year
  Sex: Female

DRUGS (8)
  1. VX-950 (TELAPREVIR) [Suspect]
     Indication: CHRONIC HEPATITIS C
     Dosage: 1500 MG, QD
     Route: 048
     Dates: start: 20120919, end: 20121209
  2. REBETOL [Suspect]
     Indication: CHRONIC HEPATITIS C
     Dosage: 600 MG, QD
     Route: 048
     Dates: start: 20120919, end: 20121008
  3. REBETOL [Suspect]
     Dosage: 400 MG, QD
     Route: 048
     Dates: start: 20121009, end: 20130305
  4. PEGINTERFERON ALFA-2B [Suspect]
     Indication: CHRONIC HEPATITIS C
     Dosage: 1.5 ?G/KG, QW
     Route: 058
     Dates: start: 20120919, end: 20121203
  5. FERO-GRADUMET [Concomitant]
     Dosage: 210 MG, QD
     Route: 048
     Dates: end: 20121203
  6. L CARTIN [Concomitant]
     Dosage: 1800 MG, QD
     Route: 048
     Dates: start: 20121022, end: 20121203
  7. HIRUDOID [Concomitant]
     Dosage: UNK, PRN
     Route: 061
     Dates: start: 20121112
  8. TALION [Concomitant]
     Dosage: 20 MG, QD
     Route: 048

REACTIONS (1)
  - White blood cell count decreased [Recovering/Resolving]
